FAERS Safety Report 11708598 (Version 1)
Quarter: 2015Q4

REPORT INFORMATION
  Report Type: Spontaneous
  Country: US (occurrence: US)
  Receive Date: 20151104
  Receipt Date: 20151104
  Transmission Date: 20160304
  Serious: Yes (Hospitalization)
  Sender: FDA-Public Use
  Company Number: US-ELI_LILLY_AND_COMPANY-US201102001667

PATIENT
  Age: 81 Year
  Sex: Female

DRUGS (2)
  1. FORTEO [Suspect]
     Active Substance: TERIPARATIDE
     Indication: OSTEOPOROSIS
     Dosage: UNK, DAILY (1/D)
     Dates: start: 200911
  2. FORTEO [Suspect]
     Active Substance: TERIPARATIDE
     Dosage: UNK, QOD
     Dates: start: 20110104, end: 20110119

REACTIONS (6)
  - Dyspepsia [Unknown]
  - Pain [Unknown]
  - Oesophageal disorder [Unknown]
  - Chest pain [Unknown]
  - Medication error [Unknown]
  - Chest pain [Unknown]

NARRATIVE: CASE EVENT DATE: 201002
